FAERS Safety Report 6149703-1 (Version None)
Quarter: 2009Q2

REPORT INFORMATION
  Report Type: 
  Country: None (occurrence: None)
  Receive Date: 20090409
  Receipt Date: 20090406
  Transmission Date: 20091009
  Serious: No
  Sender: FDA-Public Use
  Company Number: US-B.I. PHARMACEUTICALS,INC./RIDGEFIELD-2009-BP-01500BP

PATIENT
  Sex: Female

DRUGS (1)
  1. MIRAPEX [Suspect]
     Indication: RESTLESS LEGS SYNDROME
     Dosage: .125MG
     Route: 048
     Dates: start: 20081218, end: 20081219

REACTIONS (9)
  - ANXIETY [None]
  - DYSPNOEA [None]
  - EPISTAXIS [None]
  - INSOMNIA [None]
  - MUSCLE TIGHTNESS [None]
  - PALPITATIONS [None]
  - PRURITUS [None]
  - RASH [None]
  - TREMOR [None]
